FAERS Safety Report 25341850 (Version 1)
Quarter: 2025Q2

REPORT INFORMATION
  Report Type: Spontaneous
  Country: GB (occurrence: GB)
  Receive Date: 20250521
  Receipt Date: 20250521
  Transmission Date: 20250717
  Serious: Yes (Death, Other)
  Sender: B BRAUN
  Company Number: GB-B.Braun Medical Inc.-2177189

PATIENT
  Age: 80 Year
  Sex: Female

DRUGS (7)
  1. METRONIDAZOLE [Suspect]
     Active Substance: METRONIDAZOLE
     Dates: start: 20141126, end: 20141205
  2. MEROPENEM [Suspect]
     Active Substance: MEROPENEM
  3. VANCOMYCIN [Suspect]
     Active Substance: VANCOMYCIN
  4. OMEPRAZOLE [Suspect]
     Active Substance: OMEPRAZOLE
  5. LINEZOLID [Suspect]
     Active Substance: LINEZOLID
  6. CIPROFLOXACIN [Suspect]
     Active Substance: CIPROFLOXACIN
  7. PIPERACILLIN SODIUM\TAZOBACTAM SODIUM [Suspect]
     Active Substance: PIPERACILLIN SODIUM\TAZOBACTAM SODIUM

REACTIONS (1)
  - Clostridium difficile infection [Fatal]
